FAERS Safety Report 5260202-1 (Version None)
Quarter: 2007Q1

REPORT INFORMATION
  Report Type: 
  Country: None (occurrence: None)
  Receive Date: 20070309
  Receipt Date: 20060502
  Transmission Date: 20070707
  Serious: No
  Sender: FDA-Public Use
  Company Number: US-GLAXOSMITHKLINE-A0603767A

PATIENT
  Age: 62 Year
  Sex: Male

DRUGS (4)
  1. NICORETTE [Suspect]
  2. ETHAMBUTOL HYDROCHLORIDE [Concomitant]
  3. MYCOBUTIN [Concomitant]
  4. AZITHROMYCIN [Concomitant]

REACTIONS (2)
  - BLOOD PRESSURE DECREASED [None]
  - DIZZINESS [None]
